FAERS Safety Report 9181475 (Version 1)
Quarter: 2013Q1

REPORT INFORMATION
  Report Type: Spontaneous
  Country: US (occurrence: US)
  Receive Date: 20130322
  Receipt Date: 20130322
  Transmission Date: 20140127
  Serious: Yes (Hospitalization)
  Sender: FDA-Public Use
  Company Number: US-B.I. PHARMACEUTICALS,INC./RIDGEFIELD-2013-BI-07350BP

PATIENT
  Age: 85 None
  Sex: Male
  Weight: 88 kg

DRUGS (1)
  1. SPIRIVA [Suspect]
     Indication: ASBESTOSIS
     Dosage: 18 MCG
     Route: 055
     Dates: start: 2010

REACTIONS (5)
  - Dyspnoea [Not Recovered/Not Resolved]
  - Dyspnoea [Recovered/Resolved]
  - Heart rate abnormal [Recovered/Resolved]
  - Product quality issue [Recovered/Resolved]
  - Product quality issue [Recovered/Resolved]
